FAERS Safety Report 5956575-4 (Version None)
Quarter: 2008Q4

REPORT INFORMATION
  Report Type: 
  Country: None (occurrence: None)
  Receive Date: 20081117
  Receipt Date: 20081117
  Transmission Date: 20090506
  Serious: Yes (Life-Threatening, Hospitalization)
  Sender: FDA-Public Use
  Company Number: None

PATIENT
  Age: 78 Year
  Sex: Male
  Weight: 73.5 kg

DRUGS (2)
  1. HEPARIN [Suspect]
     Indication: DEEP VEIN THROMBOSIS
     Dosage: 5000 UNITS TID SQ
     Route: 058
     Dates: start: 20080806, end: 20080814
  2. HEPARIN [Suspect]
     Indication: PROPHYLAXIS
     Dosage: 5000 UNITS TID SQ
     Route: 058
     Dates: start: 20080806, end: 20080814

REACTIONS (1)
  - THROMBOCYTOPENIA [None]
